FAERS Safety Report 9682024 (Version 3)
Quarter: 2014Q1

REPORT INFORMATION
  Report Type: Report from Study
  Country: IN (occurrence: IN)
  Receive Date: 20131111
  Receipt Date: 20140211
  Transmission Date: 20141002
  Serious: Yes (Other)
  Sender: FDA-Public Use
  Company Number: PHHY2013IN127237

PATIENT
  Age: 48 Year
  Sex: Male
  Weight: 63 kg

DRUGS (16)
  1. MYCOPHENOLIC ACID [Suspect]
     Indication: RENAL TRANSPLANT
     Dosage: 1260 MG, (360 MG TDS AND 180 MG ONCE DAILY)
     Dates: start: 20110706
  2. MYCOPHENOLIC ACID [Suspect]
     Dosage: 360 MG, TID
     Dates: start: 20110722
  3. MYCOPHENOLIC ACID [Suspect]
     Dosage: 360 MG, TID
     Dates: start: 20110808
  4. MYCOPHENOLIC ACID [Suspect]
     Dosage: 360 MG, TID
     Dates: start: 20111008
  5. MYCOPHENOLIC ACID [Suspect]
     Dosage: 360 MG, TID
     Dates: start: 20120109
  6. MYCOPHENOLIC ACID [Suspect]
     Dosage: 360 MG, TID
     Dates: start: 20120709
  7. TACROLIMUS [Suspect]
     Indication: RENAL TRANSPLANT
     Dosage: 0.1 MG PER KG PER BODY WEIGHT
     Dates: start: 20110706
  8. TACROLIMUS [Suspect]
     Dosage: 0.7 MG PER KG PER BODY WEIGHT
     Dates: start: 20110722
  9. TACROLIMUS [Suspect]
     Dosage: 0.7 MG PER KG PER BODY WEIGHT
     Dates: start: 20110808
  10. TACROLIMUS [Suspect]
     Dosage: 0.6 MG PER KG PER BODY WEIGHT
     Dates: start: 20111008
  11. TACROLIMUS [Suspect]
     Dosage: 0.6 MG PER KG PER BODY WEIGHT
     Dates: start: 20120109
  12. TACROLIMUS [Suspect]
     Dosage: 0.6 MG PER KG PER BODY WEIGHT
     Dates: start: 20120709
  13. VALGANCICLOVIR [Concomitant]
     Dosage: UNK UKN, UNK
  14. THYMOGLOBULIN [Concomitant]
     Indication: IMMUNOSUPPRESSION
     Dosage: UNK UKN, UNK
  15. ANTIBIOTICS [Concomitant]
     Dosage: UNK UKN, UNK
  16. COTRIMOXAZOLE [Concomitant]

REACTIONS (6)
  - Myocardial infarction [Recovered/Resolved]
  - Hypertension [Unknown]
  - Respiratory tract congestion [Unknown]
  - Crepitations [Unknown]
  - Urine output increased [Unknown]
  - Diabetes mellitus [Not Recovered/Not Resolved]
